FAERS Safety Report 8492261-7 (Version None)
Quarter: 2012Q3

REPORT INFORMATION
  Report Type: 
  Country: None (occurrence: None)
  Receive Date: 20120706
  Receipt Date: 20120702
  Transmission Date: 20120928
  Serious: Yes (Other)
  Sender: FDA-Public Use
  Company Number: DE-ROCHE-1082930

PATIENT
  Sex: Female
  Weight: 58 kg

DRUGS (3)
  1. AVASTIN [Suspect]
     Indication: NON-SMALL CELL LUNG CANCER
     Dates: start: 20080612
  2. CISPLATIN [Concomitant]
     Indication: NON-SMALL CELL LUNG CANCER
     Dates: start: 20080612
  3. GEMCITABINE [Concomitant]
     Indication: NON-SMALL CELL LUNG CANCER
     Dates: start: 20080612

REACTIONS (2)
  - EMBOLISM [None]
  - PERICARDIAL EFFUSION MALIGNANT [None]
